FAERS Safety Report 12391121 (Version 1)
Quarter: 2016Q2

REPORT INFORMATION
  Report Type: Spontaneous
  Country: US (occurrence: US)
  Receive Date: 20160520
  Receipt Date: 20160520
  Transmission Date: 20160815
  Serious: No
  Sender: FDA-Public Use
  Company Number: US-PFIZER INC-2016260848

PATIENT
  Age: 86 Year
  Sex: Female

DRUGS (12)
  1. TOVIAZ [Suspect]
     Active Substance: FESOTERODINE FUMARATE
     Dosage: UNK
  2. MOBIC [Suspect]
     Active Substance: MELOXICAM
     Dosage: UNK
  3. CELEBREX [Suspect]
     Active Substance: CELECOXIB
     Dosage: UNK
  4. BONIVA [Suspect]
     Active Substance: IBANDRONATE SODIUM
     Dosage: UNK
  5. MIRTAZAPINE. [Suspect]
     Active Substance: MIRTAZAPINE
     Dosage: UNK
  6. FOSAMAX [Suspect]
     Active Substance: ALENDRONATE SODIUM
     Dosage: UNK
  7. OXYBUTYNIN [Suspect]
     Active Substance: OXYBUTYNIN
     Dosage: UNK
  8. BEXTRA [Suspect]
     Active Substance: VALDECOXIB
     Dosage: UNK
  9. AMOXICILLIN. [Suspect]
     Active Substance: AMOXICILLIN
     Dosage: UNK
  10. LEXAPRO [Suspect]
     Active Substance: ESCITALOPRAM OXALATE
     Dosage: UNK
  11. ENABLEX [Suspect]
     Active Substance: DARIFENACIN HYDROBROMIDE
     Dosage: UNK
  12. BACTRIM [Suspect]
     Active Substance: SULFAMETHOXAZOLE\TRIMETHOPRIM
     Dosage: UNK

REACTIONS (1)
  - Drug hypersensitivity [Unknown]
